FAERS Safety Report 11544929 (Version 1)
Quarter: 2015Q3

REPORT INFORMATION
  Report Type: Spontaneous
  Country: FR (occurrence: FR)
  Receive Date: 20150924
  Receipt Date: 20150924
  Transmission Date: 20151125
  Serious: Yes (Death, Other)
  Sender: FDA-Public Use
  Company Number: FR-SUN PHARMACEUTICAL INDUSTRIES LTD-2015RR-103612

PATIENT

DRUGS (1)
  1. VALPROIC ACID. [Suspect]
     Active Substance: VALPROIC ACID
     Indication: FEBRILE CONVULSION
     Route: 065

REACTIONS (4)
  - Nervous system disorder [Fatal]
  - Metabolic disorder [Fatal]
  - Hepatic failure [Fatal]
  - Mitochondrial DNA mutation [Fatal]
